FAERS Safety Report 7850196-4 (Version None)
Quarter: 2011Q4

REPORT INFORMATION
  Report Type: 
  Country: None (occurrence: None)
  Receive Date: 20111021
  Receipt Date: 20111018
  Transmission Date: 20120403
  Serious: Yes (Death, Other)
  Sender: FDA-Public Use
  Company Number: CLOF-1000306

PATIENT
  Age: 68 Year
  Sex: Male

DRUGS (2)
  1. EVOLTRA (CLOFARABINE) SOLUTION FOR INFUSION [Suspect]
     Indication: ACUTE MYELOID LEUKAEMIA
     Dates: start: 20080915
  2. DAUNORUBICIN HCL [Suspect]
     Indication: ACUTE MYELOID LEUKAEMIA
     Dates: start: 20080915

REACTIONS (8)
  - GENERAL PHYSICAL HEALTH DETERIORATION [None]
  - BLOOD CREATININE INCREASED [None]
  - NEPHROPATHY TOXIC [None]
  - DEHYDRATION [None]
  - ACUTE MYELOID LEUKAEMIA [None]
  - HYPERNATRAEMIA [None]
  - NEOPLASM PROGRESSION [None]
  - DIABETES INSIPIDUS [None]
